FAERS Safety Report 6156959-8 (Version None)
Quarter: 2009Q2

REPORT INFORMATION
  Report Type: 
  Country: None (occurrence: None)
  Receive Date: 20090416
  Receipt Date: 20090410
  Transmission Date: 20091009
  Serious: Yes (Hospitalization)
  Sender: FDA-Public Use
  Company Number: B0569502A

PATIENT
  Sex: Male

DRUGS (1)
  1. ZOVIRAX [Suspect]
     Dosage: 300MG THREE TIMES PER DAY
     Route: 042
     Dates: start: 20090309, end: 20090309

REACTIONS (1)
  - INFUSION SITE EXTRAVASATION [None]
